APPROVED DRUG PRODUCT: NEVIRAPINE
Active Ingredient: NEVIRAPINE
Strength: 400MG
Dosage Form/Route: TABLET, EXTENDED RELEASE;ORAL
Application: A207698 | Product #001
Applicant: AUROBINDO PHARMA LTD
Approved: Feb 28, 2017 | RLD: No | RS: No | Type: DISCN